FAERS Safety Report 8980393 (Version 2)
Quarter: 2013Q1

REPORT INFORMATION
  Report Type: Spontaneous
  Country: US (occurrence: US)
  Receive Date: 20121221
  Receipt Date: 20130221
  Transmission Date: 20140127
  Serious: Yes (Hospitalization, Other)
  Sender: FDA-Public Use
  Company Number: US-VERTEX PHARMACEUTICALS INC.-2012-026493

PATIENT
  Age: 61 None
  Sex: Female

DRUGS (20)
  1. INCIVEK [Suspect]
     Indication: HEPATITIS C
     Dosage: UNK
     Route: 048
     Dates: start: 20120907, end: 20121122
  2. RIBAVIRIN [Suspect]
     Indication: HEPATITIS C
     Dosage: UNK
     Dates: start: 20120907, end: 20121122
  3. PEGINTERFERON [Suspect]
     Indication: HEPATITIS C
     Dosage: UNK
     Dates: start: 20120907, end: 20121122
  4. POTASSIUM CHLORIDE [Concomitant]
     Dosage: 20 MEQ, QD
     Route: 048
  5. HYDROCHLOROTHIAZIDE [Concomitant]
     Dosage: 25 MG, QD
     Route: 048
  6. OMEPRAZOLE [Concomitant]
     Dosage: 20 MG, BID
     Route: 048
  7. LOPRESSOR [Concomitant]
     Dosage: 50 MG, BID
     Route: 048
  8. LOPRESSOR [Concomitant]
     Dosage: 25 MG, BID
     Route: 048
  9. SYNTHROID [Concomitant]
     Dosage: 150 ?G, QD
     Route: 048
  10. TOPAMAX [Concomitant]
     Indication: CONVULSION
     Dosage: 100 MG, QD
     Route: 048
  11. KEPPRA [Concomitant]
     Indication: CONVULSION
     Dosage: 750 MG, BID
     Route: 048
  12. FIORINAL [Concomitant]
     Indication: HEADACHE
     Dosage: 1-2 TABLETS, PRN
     Route: 048
  13. FIORINAL [Concomitant]
     Dosage: 1 DF, PRN
     Route: 048
  14. METFORMIN [Concomitant]
     Dosage: 250 MG, BID
     Route: 048
  15. FOLATE [Concomitant]
     Dosage: 1 MG, QD
     Route: 048
  16. MULTIVITAMIN [Concomitant]
     Dosage: 1 DF, QD
     Route: 048
  17. KLONOPIN [Concomitant]
     Dosage: 0.5 MG, PRN
     Route: 048
  18. PRILOSEC [Concomitant]
     Dosage: 20 MG, BID
     Route: 048
  19. LEVOTHYROXINE [Concomitant]
     Indication: HYPOTHYROIDISM
     Dosage: UNK
  20. GLYBURIDE [Concomitant]
     Indication: TYPE 2 DIABETES MELLITUS
     Dosage: UNK
     Dates: start: 20130105

REACTIONS (10)
  - Thrombotic thrombocytopenic purpura [Unknown]
  - Renal failure acute [Unknown]
  - Convulsion [Recovered/Resolved]
  - Allergic transfusion reaction [Unknown]
  - Dyspnoea [Unknown]
  - Chest discomfort [Unknown]
  - Urinary tract infection [Unknown]
  - Asthenia [Unknown]
  - Anaemia [Unknown]
  - Blood bilirubin increased [Recovered/Resolved]
